FAERS Safety Report 5018066-7 (Version None)
Quarter: 2006Q2

REPORT INFORMATION
  Report Type: 
  Country: None (occurrence: None)
  Receive Date: 20060530
  Receipt Date: 20060517
  Transmission Date: 20061013
  Serious: Yes (Other)
  Sender: FDA-Public Use
  Company Number: 2006030528

PATIENT
  Age: 65 Year
  Sex: Female
  Weight: 72.5755 kg

DRUGS (5)
  1. CLINDAMYCIN HCL [Suspect]
     Indication: RASH
     Dosage: 900 MG (300 MG, 3 IN 1 D)
     Dates: start: 20060118, end: 20060101
  2. PREMARIN [Concomitant]
  3. ACIPHEX [Concomitant]
  4. PROZAC [Concomitant]
  5. NASAL PREPARATIONS (NASAL PREPARATIONS) [Concomitant]

REACTIONS (10)
  - CONDITION AGGRAVATED [None]
  - DIARRHOEA [None]
  - DYSGEUSIA [None]
  - DYSPEPSIA [None]
  - HYPERSENSITIVITY [None]
  - INSOMNIA [None]
  - ORAL INTAKE REDUCED [None]
  - RASH PRURITIC [None]
  - SJOGREN'S SYNDROME [None]
  - SYSTEMIC LUPUS ERYTHEMATOSUS [None]
